FAERS Safety Report 10247531 (Version 1)
Quarter: 2014Q2

REPORT INFORMATION
  Report Type: Spontaneous
  Country: AU (occurrence: None)
  Receive Date: 20140617
  Receipt Date: 20140617
  Transmission Date: 20141212
  Serious: Yes (Hospitalization)
  Sender: FDA-Public Use
  Company Number: VAL_03167_2014

PATIENT
  Age: 41 Year
  Sex: Male

DRUGS (5)
  1. CARBAMAZEPINE (CARBAMAZEPINE) [Suspect]
     Indication: PRODUCT USED FOR UNKNOWN INDICATION
     Route: 048
  2. QUETIAPINE (QUETIAPINE) [Suspect]
     Route: 048
  3. FLUOXETINE (FLUOXETINE) [Suspect]
     Indication: PRODUCT USED FOR UNKNOWN INDICATION
     Route: 048
  4. SODIUM VALPROATE (SODIUM VALPROATE) [Suspect]
     Indication: PRODUCT USED FOR UNKNOWN INDICATION
     Route: 048
  5. OXAZEPAM (OXAZEPAM) [Suspect]
     Indication: PRODUCT USED FOR UNKNOWN INDICATION
     Route: 048

REACTIONS (5)
  - Exposure via ingestion [None]
  - Hypotension [None]
  - Distributive shock [None]
  - Metabolic acidosis [None]
  - Pneumonia aspiration [None]
